FAERS Safety Report 18318089 (Version 2)
Quarter: 2021Q2

REPORT INFORMATION
  Report Type: Spontaneous
  Country: US (occurrence: US)
  Receive Date: 20200928
  Receipt Date: 20210409
  Transmission Date: 20210717
  Serious: No
  Sender: FDA-Public Use
  Company Number: US-PFIZER INC-2020367975

PATIENT
  Age: 61 Year
  Sex: Female

DRUGS (2)
  1. XELJANZ XR [Suspect]
     Active Substance: TOFACITINIB CITRATE
     Indication: RHEUMATOID ARTHRITIS
  2. XELJANZ XR [Suspect]
     Active Substance: TOFACITINIB CITRATE
     Indication: INTERSTITIAL LUNG DISEASE
     Dosage: 11 MG
     Dates: start: 20200816

REACTIONS (3)
  - Therapeutic response unexpected [Unknown]
  - Inflammation [Unknown]
  - Pain [Unknown]

NARRATIVE: CASE EVENT DATE: 2020
